FAERS Safety Report 5940255-5 (Version None)
Quarter: 2008Q4

REPORT INFORMATION
  Report Type: 
  Country: None (occurrence: None)
  Receive Date: 20081031
  Receipt Date: 20081031
  Transmission Date: 20090506
  Serious: Yes (Hospitalization)
  Sender: FDA-Public Use
  Company Number: None

PATIENT
  Sex: Male
  Weight: 19.4 kg

DRUGS (6)
  1. CYTARABINE [Suspect]
     Dosage: 70 MG
  2. DEXAMETHASONE [Suspect]
     Dosage: 62.5 MG
  3. METHOTREXATE [Suspect]
     Dosage: 12 MG
  4. PEG-L- ASPARAGINASE (K-H) [Suspect]
     Dosage: 1875 IU
  5. VINCRISTINE SULFATE [Suspect]
     Dosage: 2.2 MG
  6. BACTRIM [Concomitant]

REACTIONS (10)
  - AGITATION [None]
  - CARDIO-RESPIRATORY ARREST [None]
  - CONFUSIONAL STATE [None]
  - DISEASE PROGRESSION [None]
  - ESCHERICHIA INFECTION [None]
  - HEPATOMEGALY [None]
  - NEUTROPENIA [None]
  - RESPIRATORY RATE INCREASED [None]
  - SEPTIC SHOCK [None]
  - TACHYCARDIA [None]
